FAERS Safety Report 8591600-6 (Version None)
Quarter: 2012Q3

REPORT INFORMATION
  Report Type: 
  Country: None (occurrence: None)
  Receive Date: 20120814
  Receipt Date: 20120809
  Transmission Date: 20120928
  Serious: No
  Sender: FDA-Public Use
  Company Number: US-PFIZER INC-2012195247

PATIENT
  Sex: Male

DRUGS (12)
  1. RAPAMUNE [Suspect]
     Dosage: 3 MG, 1X/DAY
     Route: 048
     Dates: start: 20120805
  2. MYFORTIC [Concomitant]
     Dosage: 720 MG, 2X/DAY
  3. EPIVIR [Concomitant]
     Dosage: 150 MG, 1X/DAY
  4. BACTRIM [Concomitant]
     Dosage: 400 MG, 1X/DAY
  5. FLOMAX [Concomitant]
     Dosage: 0.4 MG, 1X/DAY
  6. PROGRAF [Concomitant]
     Dosage: 9MG IN MORNING AND 8MG AT NIGHT
     Dates: end: 20120801
  7. RAPAMUNE [Suspect]
     Indication: PROPHYLAXIS AGAINST TRANSPLANT REJECTION
     Dosage: 5 MG (FIVE OF 1MG), 1X/DAY
     Route: 048
     Dates: start: 20120804, end: 20120805
  8. ACYCLOVIR [Concomitant]
     Dosage: 400 MG, 2X/DAY
  9. URSODIOL [Concomitant]
     Dosage: 300 MG, 2X/DAY
  10. NORVASC [Concomitant]
     Dosage: 10 MG, 1X/DAY
  11. PEPCID [Concomitant]
     Dosage: 20 MG, 2X/DAY
  12. ZOLOFT [Concomitant]
     Dosage: 100 MG, 1X/DAY

REACTIONS (2)
  - NAUSEA [None]
  - VOMITING [None]
